FAERS Safety Report 11661316 (Version 1)
Quarter: 2015Q4

REPORT INFORMATION
  Report Type: Spontaneous
  Country: US (occurrence: US)
  Receive Date: 20151026
  Receipt Date: 20151026
  Transmission Date: 20160304
  Serious: No
  Sender: FDA-Public Use
  Company Number: US-JUBILANT CADISTA PHARMACEUTICALS-2015JUB00230

PATIENT
  Sex: Female

DRUGS (1)
  1. PREDNISONE. [Suspect]
     Active Substance: PREDNISONE
     Dosage: 60 MG, 1X/DAY
     Route: 048
     Dates: start: 201505, end: 201505

REACTIONS (3)
  - Dysphagia [Unknown]
  - Dyspnoea [Unknown]
  - Oesophagitis [Unknown]

NARRATIVE: CASE EVENT DATE: 2015
